FAERS Safety Report 7043563-2 (Version None)
Quarter: 2010Q4

REPORT INFORMATION
  Report Type: 
  Country: None (occurrence: None)
  Receive Date: 20101013
  Receipt Date: 20101005
  Transmission Date: 20110411
  Serious: Yes (Congenital Anomaly)
  Sender: FDA-Public Use
  Company Number: A0871247A

PATIENT
  Sex: Female

DRUGS (1)
  1. PAXIL [Suspect]
     Indication: PRODUCT USED FOR UNKNOWN INDICATION
     Dosage: 20MG UNKNOWN
     Dates: start: 19970101

REACTIONS (9)
  - ABNORMAL BEHAVIOUR [None]
  - APPENDICECTOMY [None]
  - CARDIAC DISORDER [None]
  - DEVELOPMENTAL DELAY [None]
  - DRUG EXPOSURE DURING PREGNANCY [None]
  - INTUSSUSCEPTION [None]
  - LAPAROTOMY [None]
  - PREMATURE BABY [None]
  - PULMONARY ARTERY STENOSIS [None]
